FAERS Safety Report 6092518-3 (Version None)
Quarter: 2009Q1

REPORT INFORMATION
  Report Type: 
  Country: None (occurrence: None)
  Receive Date: 20090223
  Receipt Date: 20090223
  Transmission Date: 20090719
  Serious: Yes (Death)
  Sender: FDA-Public Use
  Company Number: None

PATIENT
  Age: 88 Year
  Sex: Male
  Weight: 67.3 kg

DRUGS (11)
  1. OLANZAPINE [Suspect]
     Indication: DEMENTIA ALZHEIMER'S TYPE
     Dosage: 2.5MG PO BID
     Route: 048
     Dates: start: 20081103, end: 20081121
  2. QUETIAPINE - SEE NARRATIVE FOR MORE DETAILED DOSING [Suspect]
     Dosage: 100MG PO QHS
     Route: 048
     Dates: start: 20080601, end: 20081121
  3. ASPIRIN [Concomitant]
  4. DEPAKOTE [Concomitant]
  5. FERROUS SULFATE TAB [Concomitant]
  6. SIMVASTATIN [Concomitant]
  7. ARICEPT [Concomitant]
  8. NEXIUM [Concomitant]
  9. DIGOXIN [Concomitant]
  10. FOLIC ACID [Concomitant]
  11. HALDOL [Concomitant]

REACTIONS (16)
  - AUTOIMMUNE DISORDER [None]
  - CELLULITIS [None]
  - DEHYDRATION [None]
  - DEMENTIA [None]
  - HIV INFECTION [None]
  - LEUKAEMIA [None]
  - MALNUTRITION [None]
  - MULTIPLE MYELOMA [None]
  - MYELODYSPLASTIC SYNDROME [None]
  - MYELOFIBROSIS [None]
  - NECROTISING FASCIITIS [None]
  - NEOPLASM MALIGNANT [None]
  - PANCYTOPENIA [None]
  - PIGMENT NEPHROPATHY [None]
  - RENAL FAILURE CHRONIC [None]
  - URINARY TRACT INFECTION [None]
